FAERS Safety Report 10663804 (Version 2)
Quarter: 2014Q4

REPORT INFORMATION
  Report Type: Spontaneous
  Country: NL (occurrence: NL)
  Receive Date: 20141219
  Receipt Date: 20141230
  Transmission Date: 20150529
  Serious: Yes (Other)
  Sender: FDA-Public Use
  Company Number: NL-AUROBINDO-AUR-APL-2014-13173

PATIENT
  Age: 43 Year
  Sex: Male

DRUGS (3)
  1. PAROXETINE 20MG [Suspect]
     Active Substance: PAROXETINE\PAROXETINE HYDROCHLORIDE
     Indication: DEPRESSION
     Dosage: 20 MG, DAILY
     Route: 065
     Dates: start: 200805, end: 201011
  2. SILDENAFIL. [Concomitant]
     Active Substance: SILDENAFIL
     Indication: ERECTILE DYSFUNCTION
     Dosage: 50 MG, UNK
     Route: 065
  3. PAROXETINE 20MG [Suspect]
     Active Substance: PAROXETINE\PAROXETINE HYDROCHLORIDE
     Dosage: UNK
     Route: 065
     Dates: start: 201011

REACTIONS (7)
  - Anaesthesia [Recovering/Resolving]
  - Erectile dysfunction [Not Recovered/Not Resolved]
  - Sensory loss [Recovering/Resolving]
  - Anosmia [Unknown]
  - Hypoaesthesia [Unknown]
  - Ejaculation failure [Not Recovered/Not Resolved]
  - Ageusia [Unknown]
